FAERS Safety Report 24440676 (Version 2)
Quarter: 2024Q4

REPORT INFORMATION
  Report Type: Report from Study
  Country: US (occurrence: US)
  Receive Date: 20241016
  Receipt Date: 20241017
  Transmission Date: 20250114
  Serious: No
  Sender: ROCHE
  Company Number: US-ROCHE-2711487

PATIENT
  Age: 89 Year
  Sex: Male
  Weight: 108.59 kg

DRUGS (2)
  1. HEMLIBRA [Suspect]
     Active Substance: EMICIZUMAB-KXWH
     Indication: Coagulation factor deficiency
     Dosage: INJECT 150MG (1ML) SUBCUTANEOUSLY EVERY 7 DAY(S) FOR 4 WEEKS, VIAL?QUANTITY: 4
     Route: 058
  2. HEMLIBRA [Suspect]
     Active Substance: EMICIZUMAB-KXWH
     Indication: Factor VIII deficiency

REACTIONS (2)
  - Off label use [Unknown]
  - No adverse event [Unknown]
